FAERS Safety Report 5799406-8 (Version None)
Quarter: 2008Q3

REPORT INFORMATION
  Report Type: 
  Country: None (occurrence: None)
  Receive Date: 20080703
  Receipt Date: 20080623
  Transmission Date: 20090109
  Serious: Yes (Other)
  Sender: FDA-Public Use
  Company Number: US-PFIZER INC-2008054208

PATIENT
  Sex: Male

DRUGS (6)
  1. CHANTIX [Suspect]
     Indication: SMOKING CESSATION THERAPY
     Dates: start: 20080201, end: 20080101
  2. XANAX [Suspect]
     Indication: ANXIETY
  3. XANAX [Suspect]
     Indication: DEPRESSION
  4. XANAX [Suspect]
     Indication: AGGRESSION
  5. NEURONTIN [Concomitant]
  6. VICODIN ES [Concomitant]

REACTIONS (4)
  - DEPRESSION [None]
  - HEPATITIS C [None]
  - MUSCULAR WEAKNESS [None]
  - WEIGHT INCREASED [None]
